FAERS Safety Report 19248267 (Version 1)
Quarter: 2021Q2

REPORT INFORMATION
  Report Type: Spontaneous
  Country: US (occurrence: US)
  Receive Date: 20210512
  Receipt Date: 20210512
  Transmission Date: 20210717
  Serious: Yes (Other)
  Sender: FDA-Public Use
  Company Number: US-UCBSA-2020026419

PATIENT
  Sex: Female

DRUGS (7)
  1. APAP [Concomitant]
     Active Substance: ACETAMINOPHEN
  2. TRAMADOL. [Concomitant]
     Active Substance: TRAMADOL
  3. CIMZIA [Suspect]
     Active Substance: CERTOLIZUMAB PEGOL
     Indication: ARTHRITIS
     Dosage: 200 MILLIGRAM, WEEKLY (QW)
     Dates: start: 202006
  4. CIMZIA [Suspect]
     Active Substance: CERTOLIZUMAB PEGOL
     Indication: RHEUMATOID ARTHRITIS
     Dosage: 200 MILLIGRAM, EV 2 WEEKS(QOW)
     Route: 058
     Dates: start: 201810
  5. IBUPROFEN. [Concomitant]
     Active Substance: IBUPROFEN
  6. CORTISONE [Concomitant]
     Active Substance: CORTISONE
  7. PREDNISONE. [Concomitant]
     Active Substance: PREDNISONE

REACTIONS (6)
  - Rheumatoid arthritis [Not Recovered/Not Resolved]
  - Drug ineffective [Unknown]
  - Product prescribing issue [Unknown]
  - Sleep disorder [Not Recovered/Not Resolved]
  - Nausea [Not Recovered/Not Resolved]
  - Maternal exposure during breast feeding [Unknown]

NARRATIVE: CASE EVENT DATE: 2020
